FAERS Safety Report 5484558-X (Version None)
Quarter: 2007Q4

REPORT INFORMATION
  Report Type: 
  Country: None (occurrence: None)
  Receive Date: 20071012
  Receipt Date: 20071002
  Transmission Date: 20080405
  Serious: Yes (Other)
  Sender: FDA-Public Use
  Company Number: RU-PFIZER INC-2007082754

PATIENT
  Age: 41 Year
  Sex: Female

DRUGS (1)
  1. AZITHROMYCIN [Suspect]
     Indication: OTITIS MEDIA CHRONIC
     Dosage: DAILY DOSE:2GRAM
     Route: 048
     Dates: start: 20070901, end: 20070901

REACTIONS (2)
  - DERMATITIS EXFOLIATIVE [None]
  - RASH [None]
